FAERS Safety Report 5890719-8 (Version None)
Quarter: 2008Q3

REPORT INFORMATION
  Report Type: 
  Country: None (occurrence: None)
  Receive Date: 20080922
  Receipt Date: 20080911
  Transmission Date: 20090109
  Serious: Yes (Hospitalization)
  Sender: FDA-Public Use
  Company Number: US-AMGEN-US307329

PATIENT
  Sex: Female
  Weight: 38.1 kg

DRUGS (9)
  1. EPOGEN [Suspect]
     Indication: RENAL FAILURE CHRONIC
     Route: 058
     Dates: start: 20080617
  2. CALCITRIOL [Concomitant]
  3. CALCIUM CARBONATE [Concomitant]
  4. IRON [Concomitant]
  5. LOSARTAN [Concomitant]
  6. SEVELAMER [Concomitant]
  7. MIRALAX [Concomitant]
  8. NEPHRO-VITE [Concomitant]
  9. ISRADIPINE [Concomitant]

REACTIONS (1)
  - ANAEMIA [None]
